FAERS Safety Report 16299008 (Version 4)
Quarter: 2019Q4

REPORT INFORMATION
  Report Type: Report from Study
  Country: US (occurrence: US)
  Receive Date: 20190510
  Receipt Date: 20191008
  Transmission Date: 20200122
  Serious: Yes (Hospitalization)
  Sender: FDA-Public Use
  Company Number: US-ALKERMES INC.-ALK-2018-006428

PATIENT
  Age: 29 Year
  Sex: Male

DRUGS (8)
  1. VIVITROL [Suspect]
     Active Substance: NALTREXONE
     Indication: DRUG ABUSE
     Dosage: UNK, Q3WK
     Route: 030
     Dates: start: 20180913
  2. VIVITROL [Suspect]
     Active Substance: NALTREXONE
     Dosage: UNK, QD
     Route: 048
     Dates: start: 20180913, end: 20181002
  3. BLINDED BUPROPION [Suspect]
     Active Substance: BUPROPION
     Dosage: UNK, QD
     Route: 048
     Dates: start: 20180913, end: 20181002
  4. BLINDED BUPROPION [Suspect]
     Active Substance: BUPROPION
     Indication: DRUG ABUSE
     Dosage: UNK, Q3WK
     Route: 030
     Dates: start: 20180913
  5. BLINDED PLACEBO [Suspect]
     Active Substance: INVESTIGATIONAL PRODUCT
     Dosage: UNK, QD
     Route: 048
     Dates: start: 20180913, end: 20181002
  6. LORAZEPAM. [Concomitant]
     Active Substance: LORAZEPAM
     Indication: SEIZURE
     Dosage: UNK
     Dates: start: 20181015, end: 20181018
  7. BLINDED PLACEBO [Suspect]
     Active Substance: INVESTIGATIONAL PRODUCT
     Indication: DRUG ABUSE
     Dosage: UNK, Q3WK
     Route: 030
     Dates: start: 20180913
  8. BIOTIN [Concomitant]
     Active Substance: BIOTIN
     Indication: PRODUCT USED FOR UNKNOWN INDICATION

REACTIONS (1)
  - Seizure [Recovered/Resolved]

NARRATIVE: CASE EVENT DATE: 20181016
